FAERS Safety Report 5433862-X (Version None)
Quarter: 2007Q3

REPORT INFORMATION
  Report Type: 
  Country: None (occurrence: None)
  Receive Date: 20070831
  Receipt Date: 20070713
  Transmission Date: 20080115
  Serious: No
  Sender: FDA-Public Use
  Company Number: A0663512A

PATIENT
  Age: 37 Year
  Sex: Female

DRUGS (1)
  1. ALLI [Suspect]

REACTIONS (4)
  - ABDOMINAL PAIN UPPER [None]
  - GASTRIC DISORDER [None]
  - ILL-DEFINED DISORDER [None]
  - MALAISE [None]
